FAERS Safety Report 20833194 (Version 2)
Quarter: 2022Q2

REPORT INFORMATION
  Report Type: Spontaneous
  Country: US (occurrence: US)
  Receive Date: 20220516
  Receipt Date: 20220606
  Transmission Date: 20220720
  Serious: No
  Sender: FDA-Public Use
  Company Number: US-PFIZER INC-202200687614

PATIENT
  Age: 60 Year
  Sex: Female

DRUGS (3)
  1. PAXLOVID [Suspect]
     Active Substance: NIRMATRELVIR\RITONAVIR
     Indication: COVID-19 treatment
     Dosage: UNK
     Dates: start: 20220406, end: 20220410
  2. CHLORTHALIDONE [Concomitant]
     Active Substance: CHLORTHALIDONE
     Dosage: 12.5 MG
  3. LISINOPRIL [Concomitant]
     Active Substance: LISINOPRIL
     Dosage: 5 MG

REACTIONS (2)
  - COVID-19 [Unknown]
  - Disease recurrence [Unknown]
